FAERS Safety Report 10861139 (Version 1)
Quarter: 2015Q1

REPORT INFORMATION
  Report Type: Spontaneous
  Country: US (occurrence: None)
  Receive Date: 20150218
  Receipt Date: 20150218
  Transmission Date: 20150721
  Serious: Yes (Other)
  Sender: FDA-Public Use
  Company Number: None

PATIENT
  Age: 56 Year
  Sex: Male
  Weight: 75 kg

DRUGS (3)
  1. OXALIPLATIN WINTHROP [Suspect]
     Active Substance: OXALIPLATIN
     Indication: COLON CANCER
     Dosage: 11 DOSES
     Route: 042
  2. LEUCOVORIN [Concomitant]
     Active Substance: LEUCOVORIN
  3. FLUOROURACIL. [Concomitant]
     Active Substance: FLUOROURACIL

REACTIONS (2)
  - Nausea [None]
  - Chills [None]

NARRATIVE: CASE EVENT DATE: 20150105
